FAERS Safety Report 7329751-6 (Version None)
Quarter: 2011Q1

REPORT INFORMATION
  Report Type: 
  Country: None (occurrence: None)
  Receive Date: 20110303
  Receipt Date: 20110225
  Transmission Date: 20110831
  Serious: Yes (Hospitalization)
  Sender: FDA-Public Use
  Company Number: IT-GILEAD-2011-0036975

PATIENT
  Sex: Female

DRUGS (5)
  1. MICROSER [Concomitant]
     Indication: MENIERE'S DISEASE
  2. TRUVADA [Suspect]
     Indication: ACUTE HIV INFECTION
     Route: 048
     Dates: start: 20100922, end: 20101003
  3. XANAX [Concomitant]
     Indication: ANXIETY
  4. REACTINE [Concomitant]
     Indication: RHINITIS ALLERGIC
  5. SUSTIVA [Suspect]
     Indication: ACUTE HIV INFECTION
     Route: 048
     Dates: start: 20100922, end: 20101003

REACTIONS (5)
  - MUSCULOSKELETAL PAIN [None]
  - DRUG ERUPTION [None]
  - PRURITUS [None]
  - RASH GENERALISED [None]
  - SENSATION OF FOREIGN BODY [None]
